FAERS Safety Report 10146005 (Version 1)
Quarter: 2014Q2

REPORT INFORMATION
  Report Type: Spontaneous
  Country: BR (occurrence: BR)
  Receive Date: 20140501
  Receipt Date: 20140501
  Transmission Date: 20141212
  Serious: Yes (Other)
  Sender: FDA-Public Use
  Company Number: PHHY2014BR052618

PATIENT
  Age: 78 Year
  Sex: Female

DRUGS (8)
  1. FORASEQ [Suspect]
     Indication: ASTHMA
     Dosage: 2 DF (ONE CAPSULE OF EACH), IN THE MORNING AND IN THE AFTERNOON
     Route: 055
  2. ZETIA [Concomitant]
     Indication: BLOOD CHOLESTEROL
     Dosage: 0.5 DF, DAILY
     Route: 048
  3. ZETIA [Concomitant]
     Indication: PROPHYLAXIS
  4. ATORVASTATIN [Concomitant]
     Indication: BLOOD CHOLESTEROL
     Dosage: 0.5 DF, DAILY
     Route: 048
  5. ATORVASTATIN [Concomitant]
     Indication: PROPHYLAXIS
  6. VITERGAN MASTER [Concomitant]
     Indication: VITAMIN SUPPLEMENTATION
     Dosage: 1 DF, DAILY
     Route: 048
  7. FLUIMUCIL [Concomitant]
     Indication: COUGH
     Dosage: 1 DF, UNK
     Route: 048
  8. FLUIMUCIL [Concomitant]
     Indication: PROPHYLAXIS

REACTIONS (9)
  - Breast cancer [Recovered/Resolved]
  - Arrhythmia [Recovering/Resolving]
  - Rhinitis [Recovered/Resolved]
  - Dyspnoea [Recovered/Resolved]
  - Nervousness [Recovered/Resolved]
  - Hypertension [Recovered/Resolved]
  - Anxiety [Recovered/Resolved]
  - Headache [Recovered/Resolved]
  - Drug administration error [Unknown]
